FAERS Safety Report 8822114 (Version 1)
Quarter: 2012Q4

REPORT INFORMATION
  Report Type: 
  Country: BR (occurrence: BR)
  Receive Date: 20121003
  Receipt Date: 20121003
  Transmission Date: 20130627
  Serious: Yes (Death)
  Sender: FDA-Public Use
  Company Number: BR-SANOFI-AVENTIS-2012SA071673

PATIENT
  Age: 81 Year
  Sex: Male

DRUGS (2)
  1. LANTUS [Suspect]
     Indication: DIABETES
     Route: 058
     Dates: start: 2002, end: 20120918
  2. AUTOPEN 24 [Concomitant]
     Indication: DEVICE THERAPY
     Dates: end: 20120918

REACTIONS (2)
  - Pneumonia [Fatal]
  - Lung infection [Fatal]
